FAERS Safety Report 10576079 (Version 1)
Quarter: 2014Q4

REPORT INFORMATION
  Report Type: Spontaneous
  Country: US (occurrence: None)
  Receive Date: 20141110
  Receipt Date: 20141110
  Transmission Date: 20150529
  Serious: Yes (Other)
  Sender: FDA-Public Use
  Company Number: None

PATIENT
  Age: 17 Year
  Sex: Female
  Weight: 89.36 kg

DRUGS (1)
  1. DIAMOX SEQUELS [Suspect]
     Active Substance: ACETAZOLAMIDE
     Indication: INTRACRANIAL PRESSURE INCREASED
     Route: 048
     Dates: start: 20141105, end: 20141108

REACTIONS (31)
  - Self injurious behaviour [None]
  - Respiratory rate increased [None]
  - Hot flush [None]
  - Visual impairment [None]
  - Autophobia [None]
  - Vertigo [None]
  - Hangover [None]
  - Dizziness [None]
  - Arthralgia [None]
  - Asthenia [None]
  - Insomnia [None]
  - Ear congestion [None]
  - Vomiting [None]
  - Chills [None]
  - Tremor [None]
  - Paranoia [None]
  - Nausea [None]
  - Depression [None]
  - Dyspnoea [None]
  - Back pain [None]
  - Myalgia [None]
  - Peripheral coldness [None]
  - Decreased appetite [None]
  - Headache [None]
  - Decreased activity [None]
  - Anxiety [None]
  - Suicidal ideation [None]
  - Eating disorder [None]
  - Dissociation [None]
  - Memory impairment [None]
  - Paraesthesia [None]

NARRATIVE: CASE EVENT DATE: 20141106
